FAERS Safety Report 8997909 (Version 1)
Quarter: 2013Q1

REPORT INFORMATION
  Report Type: Report from Study
  Country: US (occurrence: US)
  Receive Date: 20130104
  Receipt Date: 20130104
  Transmission Date: 20140127
  Serious: Yes (Death, Other)
  Sender: FDA-Public Use
  Company Number: US-BAYER-2012-065676

PATIENT
  Age: 58 Year
  Sex: Female

DRUGS (7)
  1. NEXAVAR [Suspect]
     Indication: HEPATIC CANCER
     Dosage: 200 MG, BID
     Dates: start: 20120628
  2. ALDACTONE [SPIRONOLACTONE] [Concomitant]
     Route: 048
  3. LASIX [Concomitant]
     Route: 048
  4. LACTULOSE [Concomitant]
     Route: 048
  5. COUMADIN [Concomitant]
     Dosage: 5 MG, UNK
     Route: 048
  6. COUMADIN [Concomitant]
     Dosage: 2.5 MG DAILY
  7. INSULIN [Concomitant]
     Indication: DIABETES MELLITUS

REACTIONS (16)
  - International normalised ratio increased [Recovering/Resolving]
  - Abdominal discomfort [Recovering/Resolving]
  - Nausea [Recovering/Resolving]
  - Diarrhoea [Not Recovered/Not Resolved]
  - Abdominal pain upper [None]
  - Fatigue [None]
  - Injection site bruising [Not Recovered/Not Resolved]
  - Decreased appetite [Not Recovered/Not Resolved]
  - Weight decreased [Not Recovered/Not Resolved]
  - Blood glucose decreased [Not Recovered/Not Resolved]
  - Burning sensation [Recovering/Resolving]
  - Pain in extremity [Not Recovered/Not Resolved]
  - Gait disturbance [None]
  - Metastases to bone [Not Recovered/Not Resolved]
  - Blood blister [None]
  - Death [Fatal]
